FAERS Safety Report 5909201-4 (Version None)
Quarter: 2008Q4

REPORT INFORMATION
  Report Type: 
  Country: None (occurrence: None)
  Receive Date: 20081006
  Receipt Date: 20080925
  Transmission Date: 20090506
  Serious: Yes (Hospitalization, Other)
  Sender: FDA-Public Use
  Company Number: US-PURDUE-USA_2004_0015675

PATIENT
  Age: 76 Year
  Sex: Female
  Weight: 68 kg

DRUGS (8)
  1. PERCOCET [Suspect]
     Indication: PROCEDURAL PAIN
     Dosage: 4 TABLET, PRN
     Dates: start: 20040113, end: 20040113
  2. DILAUDID [Suspect]
     Indication: PROCEDURAL PAIN
     Dosage: UNK, PRN
     Dates: start: 20040113, end: 20040113
  3. DIOVAN                             /01319601/ [Concomitant]
     Indication: DRUG USE FOR UNKNOWN INDICATION
     Dosage: 40 MG, DAILY
  4. LASIX [Concomitant]
     Indication: DRUG USE FOR UNKNOWN INDICATION
     Dosage: 20 MG, DAILY
  5. WARFARIN SODIUM [Concomitant]
     Indication: DRUG USE FOR UNKNOWN INDICATION
     Dosage: 4 MG, DAILY
  6. LEVOXYL [Concomitant]
     Indication: DRUG USE FOR UNKNOWN INDICATION
     Dosage: 50 MG, UNK
  7. DETROL                             /01350202/ [Concomitant]
     Indication: DRUG USE FOR UNKNOWN INDICATION
     Dosage: UNK, PRN
  8. OXYCONTIN [Suspect]
     Indication: PROCEDURAL PAIN
     Dosage: 20 MG, Q12H
     Dates: start: 20040113, end: 20040113

REACTIONS (8)
  - AGGRESSION [None]
  - AGITATION [None]
  - DELIRIUM [None]
  - DIZZINESS [None]
  - MEMORY IMPAIRMENT [None]
  - PARANOIA [None]
  - PNEUMONIA [None]
  - SCHIZOPHRENIA [None]
